FAERS Safety Report 11086369 (Version 1)
Quarter: 2015Q2

REPORT INFORMATION
  Report Type: Spontaneous
  Country: GB (occurrence: GB)
  Receive Date: 20150504
  Receipt Date: 20150504
  Transmission Date: 20150821
  Serious: Yes (Hospitalization)
  Sender: FDA-Public Use
  Company Number: PHHY2015GB049905

PATIENT
  Age: 1 Day
  Sex: Female

DRUGS (3)
  1. SODIUM CHLORIDE. [Concomitant]
     Active Substance: SODIUM CHLORIDE
     Indication: PRODUCT USED FOR UNKNOWN INDICATION
     Dosage: 0.9 %
     Route: 042
  2. CEFOTAXIME [Concomitant]
     Active Substance: CEFOTAXIME\CEFOTAXIME SODIUM
     Indication: PRODUCT USED FOR UNKNOWN INDICATION
     Dosage: 157 MG, BID,SLOW BOLUS OVER 3-4 MINUTES
     Route: 040
  3. AMOXICILLIN. [Suspect]
     Active Substance: AMOXICILLIN
     Indication: SEPSIS NEONATAL
     Dosage: 157 MG BID, SLOW BOLUS OVER 3-4 MINUTES
     Route: 040
     Dates: start: 20140708, end: 20140709

REACTIONS (1)
  - Catheter site extravasation [Recovering/Resolving]
